FAERS Safety Report 9162372 (Version 1)
Quarter: 2013Q1

REPORT INFORMATION
  Report Type: Spontaneous
  Country: JP (occurrence: JP)
  Receive Date: 20130314
  Receipt Date: 20130314
  Transmission Date: 20140127
  Serious: Yes (Other)
  Sender: FDA-Public Use
  Company Number: JP-009507513-1211JPN003426

PATIENT
  Age: 73 Year
  Sex: Male
  Weight: 67 kg

DRUGS (7)
  1. JANUVIA TABLETS 100MG [Suspect]
     Dosage: 100 MG, QD
     Route: 048
     Dates: start: 20120705
  2. JANUVIA TABLETS 100MG [Suspect]
     Dosage: 25 MG, QD
     Route: 048
     Dates: start: 20120315, end: 20120524
  3. JANUVIA TABLETS 100MG [Suspect]
     Dosage: 50 MG, QD
     Route: 048
     Dates: start: 20120524, end: 20120705
  4. JANUVIA TABLETS 100MG [Suspect]
     Dosage: 50 MG, QD
     Route: 048
     Dates: end: 20121023
  5. ACTOS [Concomitant]
     Dosage: DAILY DOSE UNKNOWN
     Route: 048
     Dates: start: 201204
  6. SEIBULE [Concomitant]
     Dosage: DAILY DOSE UNKNOWN
     Route: 048
     Dates: start: 200812
  7. AMARYL [Concomitant]
     Dosage: UNK
     Route: 065
     Dates: start: 20120524, end: 20120705

REACTIONS (1)
  - Basedow^s disease [Recovered/Resolved]
